FAERS Safety Report 21447163 (Version 1)
Quarter: 2022Q4

REPORT INFORMATION
  Report Type: Spontaneous
  Country: US (occurrence: US)
  Receive Date: 20221012
  Receipt Date: 20221012
  Transmission Date: 20230113
  Serious: Yes (Other)
  Sender: FDA-Public Use
  Company Number: US-JNJFOC-20220962456

PATIENT
  Sex: Female

DRUGS (9)
  1. TOPIRAMATE [Suspect]
     Active Substance: TOPIRAMATE
     Indication: Migraine
     Route: 048
  2. BOTOX [Concomitant]
     Active Substance: ONABOTULINUMTOXINA
  3. MODAFINIL [Concomitant]
     Active Substance: MODAFINIL
  4. MELATONIN [Concomitant]
     Active Substance: MELATONIN
  5. BACLOFEN [Concomitant]
     Active Substance: BACLOFEN
  6. MOTEGRITY [Concomitant]
     Active Substance: PRUCALOPRIDE SUCCINATE
  7. COLACE [Concomitant]
     Active Substance: DOCUSATE SODIUM
  8. ATORVASTATIN [Concomitant]
     Active Substance: ATORVASTATIN
  9. LOSARTAN [Concomitant]
     Active Substance: LOSARTAN

REACTIONS (13)
  - Primary progressive multiple sclerosis [Unknown]
  - Abdominal discomfort [Unknown]
  - Dyspnoea [Unknown]
  - Lethargy [Unknown]
  - Cough [Unknown]
  - Asthenia [Unknown]
  - Bladder spasm [Unknown]
  - Anal incontinence [Unknown]
  - Urinary incontinence [Unknown]
  - Migraine [Unknown]
  - Burning sensation [Unknown]
  - Weight decreased [Not Recovered/Not Resolved]
  - Therapeutic product effect decreased [Unknown]
